FAERS Safety Report 8091190-0 (Version None)
Quarter: 2012Q1

REPORT INFORMATION
  Report Type: 
  Country: None (occurrence: None)
  Receive Date: 20120129
  Receipt Date: 20110928
  Transmission Date: 20120608
  Serious: No
  Sender: FDA-Public Use
  Company Number: US-ABBOTT-11P-163-0859467-00

PATIENT
  Sex: Male

DRUGS (1)
  1. HUMIRA [Suspect]
     Indication: ANKYLOSING SPONDYLITIS
     Route: 058
     Dates: start: 20110101

REACTIONS (7)
  - ARTHRALGIA [None]
  - HAEMATOCHEZIA [None]
  - DRY SKIN [None]
  - BACK PAIN [None]
  - COLITIS ULCERATIVE [None]
  - SKIN HAEMORRHAGE [None]
  - DRUG INEFFECTIVE [None]
